FAERS Safety Report 8776042 (Version 2)
Quarter: 2012Q4

REPORT INFORMATION
  Report Type: 
  Country: JP (occurrence: JP)
  Receive Date: 20120910
  Receipt Date: 20120914
  Transmission Date: 20130627
  Serious: Yes (Hospitalization)
  Sender: FDA-Public Use
  Company Number: JP-B.I. PHARMACEUTICALS,INC./RIDGEFIELD-2012-BP-21438NB

PATIENT
  Sex: Female

DRUGS (5)
  1. SPIRIVA [Suspect]
     Route: 055
  2. ARTIST [Concomitant]
     Route: 048
  3. WARFARIN [Concomitant]
     Route: 048
  4. BLOSTAR M [Concomitant]
     Dosage: 10 mg
     Route: 048
  5. TANATRIL [Concomitant]
     Dosage: 0.5 mg
     Route: 048

REACTIONS (1)
  - Cardiac failure [Unknown]
